FAERS Safety Report 8217575-7 (Version None)
Quarter: 2012Q1

REPORT INFORMATION
  Report Type: 
  Country: None (occurrence: None)
  Receive Date: 20120319
  Receipt Date: 20120319
  Transmission Date: 20120608
  Serious: Yes (Life-Threatening)
  Sender: FDA-Public Use
  Company Number: None

PATIENT
  Age: 74 Year
  Sex: Male
  Weight: 92.1 kg

DRUGS (2)
  1. HEPARIN LOCK-FLUSH [Suspect]
     Indication: INTRAVENOUS CATHETER MANAGEMENT
     Dosage: UNKNOWN -FLUSH-
     Route: 042
     Dates: start: 20120221, end: 20120221
  2. HEPARIN LOCK-FLUSH [Suspect]
     Indication: ANTICOAGULANT THERAPY
     Dosage: UNKNOWN -FLUSH-
     Route: 042
     Dates: start: 20120221, end: 20120221

REACTIONS (11)
  - TRACHEOBRONCHITIS [None]
  - ANAPHYLACTIC REACTION [None]
  - ILEUS [None]
  - URINARY INCONTINENCE [None]
  - URINARY RETENTION [None]
  - BLOOD PRESSURE DECREASED [None]
  - STAPHYLOCOCCAL INFECTION [None]
  - HAEMODYNAMIC INSTABILITY [None]
  - INTESTINAL ISCHAEMIA [None]
  - ANGIOEDEMA [None]
  - THROMBOPHLEBITIS SUPERFICIAL [None]
